FAERS Safety Report 15235724 (Version 2)
Quarter: 2018Q4

REPORT INFORMATION
  Report Type: Report from Study
  Country: US (occurrence: US)
  Receive Date: 20180803
  Receipt Date: 20181224
  Transmission Date: 20190204
  Serious: Yes (Life-Threatening, Other)
  Sender: FDA-Public Use
  Company Number: US-TESARO, INC-US-2018TSO00649

PATIENT
  Sex: Female
  Weight: 72.56 kg

DRUGS (3)
  1. ZEJULA [Suspect]
     Active Substance: NIRAPARIB
     Indication: FALLOPIAN TUBE CANCER
     Dosage: 200 MG, QD
     Route: 048
     Dates: start: 20180315, end: 20180527
  2. ZEJULA [Suspect]
     Active Substance: NIRAPARIB
     Dosage: 100 MG, QD
     Route: 048
     Dates: start: 20180611, end: 2018
  3. ZEJULA [Suspect]
     Active Substance: NIRAPARIB
     Indication: OVARIAN CANCER
     Dosage: 300 MG, QD
     Route: 048
     Dates: start: 20180201, end: 201802

REACTIONS (14)
  - Photosensitivity reaction [Recovered/Resolved]
  - Dizziness [Not Recovered/Not Resolved]
  - Blood count abnormal [Recovered/Resolved]
  - Fatigue [Recovering/Resolving]
  - Disease progression [Unknown]
  - Eastern Cooperative Oncology Group performance status worsened [Unknown]
  - Rash [Recovered/Resolved]
  - Sleep disorder [Recovered/Resolved]
  - Platelet count decreased [Unknown]
  - Emotional distress [Not Recovered/Not Resolved]
  - Pruritus [Recovered/Resolved]
  - Contusion [Recovered/Resolved]
  - Nausea [Recovered/Resolved]
  - Drug intolerance [Unknown]
